FAERS Safety Report 19513939 (Version 1)
Quarter: 2021Q3

REPORT INFORMATION
  Report Type: Spontaneous
  Country: AT (occurrence: AT)
  Receive Date: 20210710
  Receipt Date: 20210710
  Transmission Date: 20211014
  Serious: Yes (Hospitalization)
  Sender: FDA-Public Use
  Company Number: AT-LUPIN PHARMACEUTICALS INC.-2021-11616

PATIENT
  Age: 41 Year
  Sex: Female
  Weight: 85 kg

DRUGS (12)
  1. NICOTINE. [Concomitant]
     Active Substance: NICOTINE
     Indication: PRODUCT USED FOR UNKNOWN INDICATION
     Route: 062
  2. FENOTEROL;IPRATROPIUM BROMIDE [Concomitant]
     Indication: BORDETELLA TEST POSITIVE
     Dosage: UNK UNK, PRN
  3. FENOTEROL;IPRATROPIUM BROMIDE [Concomitant]
     Indication: BORDETELLA INFECTION
  4. BUDESONIDE. [Suspect]
     Active Substance: BUDESONIDE
     Indication: BORDETELLA TEST POSITIVE
     Dosage: UNK
  5. PREDNISOLONE. [Suspect]
     Active Substance: PREDNISOLONE
     Indication: BORDETELLA INFECTION
  6. NICOTINE. [Concomitant]
     Active Substance: NICOTINE
     Dosage: UNK
     Route: 064
  7. DIHYDROCODEINE [Concomitant]
     Active Substance: DIHYDROCODEINE
     Indication: BORDETELLA TEST POSITIVE
     Dosage: UNK
     Route: 048
  8. LEVOCETIRIZINE [Concomitant]
     Active Substance: LEVOCETIRIZINE
     Indication: BORDETELLA INFECTION
  9. PREDNISOLONE. [Suspect]
     Active Substance: PREDNISOLONE
     Indication: BORDETELLA TEST POSITIVE
     Dosage: 25 MILLIGRAM, QD
     Route: 048
  10. LEVOCETIRIZINE [Concomitant]
     Active Substance: LEVOCETIRIZINE
     Indication: BORDETELLA TEST POSITIVE
     Dosage: 5 MILLIGRAM, PRN
     Route: 048
  11. BUDESONIDE. [Suspect]
     Active Substance: BUDESONIDE
     Indication: BORDETELLA INFECTION
  12. DIHYDROCODEINE [Concomitant]
     Active Substance: DIHYDROCODEINE
     Indication: BORDETELLA INFECTION

REACTIONS (1)
  - Oropharyngeal candidiasis [Not Recovered/Not Resolved]
